FAERS Safety Report 19459740 (Version 1)
Quarter: 2021Q2

REPORT INFORMATION
  Report Type: Spontaneous
  Country: FR (occurrence: FR)
  Receive Date: 20210624
  Receipt Date: 20210624
  Transmission Date: 20210717
  Serious: Yes (Hospitalization)
  Sender: FDA-Public Use
  Company Number: NVSC2021FR137170

PATIENT
  Age: 62 Year
  Sex: Male
  Weight: 66.7 kg

DRUGS (11)
  1. RITUXIMAB. [Suspect]
     Active Substance: RITUXIMAB
     Indication: B-CELL LYMPHOMA
     Dosage: 700 MG,CYCLIC
     Route: 042
     Dates: start: 20201012, end: 20210309
  2. METHYLPREDNISOLONE. [Concomitant]
     Active Substance: METHYLPREDNISOLONE
     Indication: PRODUCT USED FOR UNKNOWN INDICATION
     Dosage: 40 MG (TOTAL)
     Route: 037
     Dates: start: 20201001, end: 20201001
  3. METHOTREXATE. [Suspect]
     Active Substance: METHOTREXATE
     Dosage: INCONNUE
     Route: 042
     Dates: start: 20201102, end: 20210104
  4. CYTARABINE. [Suspect]
     Active Substance: CYTARABINE
     Indication: B-CELL LYMPHOMA
     Dosage: 30 MG,1
     Route: 037
     Dates: start: 20201001, end: 20201001
  5. VINDESINE SULFATE [Suspect]
     Active Substance: VINDESINE SULFATE
     Indication: B-CELL LYMPHOMA
     Dosage: UNK (INCONNUE)
     Route: 042
     Dates: start: 20210104, end: 20210309
  6. METHOTREXATE. [Suspect]
     Active Substance: METHOTREXATE
     Indication: B-CELL LYMPHOMA
     Dosage: 15 MG (TOTAL)
     Route: 037
     Dates: start: 20201001, end: 20201001
  7. ETOPOSIDE. [Suspect]
     Active Substance: ETOPOSIDE
     Indication: B-CELL LYMPHOMA
     Dosage: 180 MG (TOTAL)
     Route: 042
     Dates: start: 20201001, end: 20201001
  8. PREDNISOLONE. [Concomitant]
     Active Substance: PREDNISOLONE
     Indication: PRODUCT USED FOR UNKNOWN INDICATION
     Dosage: UNK,CYCLIC (INCONNUE)
     Route: 048
     Dates: start: 20201001, end: 20210313
  9. CYCLOPHOSPHAMIDE. [Suspect]
     Active Substance: CYCLOPHOSPHAMIDE
     Indication: B-CELL LYMPHOMA
     Dosage: UNK,CYCLIC (INCONNUE)
     Route: 042
     Dates: start: 20201001, end: 20210309
  10. VINCRISTINE SULFATE. [Suspect]
     Active Substance: VINCRISTINE SULFATE
     Indication: B-CELL LYMPHOMA
     Dosage: 2 MG,CYCLIC
     Route: 042
     Dates: start: 20201013, end: 20201214
  11. DOXORUBICINE [Suspect]
     Active Substance: DOXORUBICIN
     Indication: B-CELL LYMPHOMA
     Dosage: UNK (INCONNUE)
     Route: 042
     Dates: start: 20201012, end: 20210309

REACTIONS (1)
  - Polyneuropathy [Recovering/Resolving]

NARRATIVE: CASE EVENT DATE: 202103
